FAERS Safety Report 16733388 (Version 1)
Quarter: 2019Q3

REPORT INFORMATION
  Report Type: Spontaneous
  Country: FR (occurrence: FR)
  Receive Date: 20190823
  Receipt Date: 20190823
  Transmission Date: 20191005
  Serious: Yes (Hospitalization)
  Sender: FDA-Public Use
  Company Number: FR-ZYDUS-039904

PATIENT
  Age: 41 Year
  Sex: Female
  Weight: 52 kg

DRUGS (8)
  1. DARZALEX [Suspect]
     Active Substance: DARATUMUMAB
     Indication: AMYLOIDOSIS
     Route: 042
     Dates: start: 20190717
  2. ENDOXAN [Suspect]
     Active Substance: CYCLOPHOSPHAMIDE
     Indication: AMYLOIDOSIS
     Dosage: D1, D8, D15 EVERY 5 WEEKS
     Route: 048
     Dates: start: 20190618, end: 20190702
  3. ZELITREX [Suspect]
     Active Substance: VALACYCLOVIR HYDROCHLORIDE
     Indication: INFECTION PROPHYLAXIS
     Route: 048
     Dates: start: 20190618
  4. VELCADE [Suspect]
     Active Substance: BORTEZOMIB
     Indication: AMYLOIDOSIS
     Route: 058
     Dates: start: 20190618
  5. RAMIPRIL. [Suspect]
     Active Substance: RAMIPRIL
     Indication: PROTEINURIA
     Dates: start: 20181017
  6. CLAMOXYL (AMOXICILLIN) [Suspect]
     Active Substance: AMOXICILLIN
     Indication: INFECTION PROPHYLAXIS
     Route: 048
     Dates: start: 20190618
  7. DEXAMETHASONE/DEXAMETHASONE ACETATE/DEXAMETHASONE DIPROPIONATE/DEXAMETHASONE ISONICOTINATE/DEXAMETHA [Suspect]
     Active Substance: DEXAMETHASONE\DEXAMETHASONE ACETATE\DEXAMETHASONE DIPROPIONATE\DEXAMETHASONE ISONICOTINATE\DEXAMETHASONE PHOSPHATE\DEXAMETHASONE SODIUM PHOSPHATE\DEXAMETHASONE TEBUTATE\DEXAMETHASONE VALERATE
     Indication: AMYLOIDOSIS
     Dates: start: 20190618
  8. BACTRIM [Suspect]
     Active Substance: SULFAMETHOXAZOLE\TRIMETHOPRIM
     Indication: INFECTION PROPHYLAXIS
     Route: 048
     Dates: start: 20190618, end: 20190717

REACTIONS (1)
  - Acute myopia [Recovered/Resolved]

NARRATIVE: CASE EVENT DATE: 20190717
